FAERS Safety Report 20437272 (Version 3)
Quarter: 2022Q1

REPORT INFORMATION
  Report Type: Report from Study
  Country: FR (occurrence: FR)
  Receive Date: 20220207
  Receipt Date: 20220314
  Transmission Date: 20220423
  Serious: Yes (Life-Threatening, Other)
  Sender: FDA-Public Use
  Company Number: FR-BRISTOL-MYERS SQUIBB COMPANY-BMS-2022-017333

PATIENT
  Sex: Female
  Weight: 63 kg

DRUGS (2)
  1. APIXABAN [Suspect]
     Active Substance: APIXABAN
     Indication: Embolism venous
     Dosage: UNK
     Route: 048
     Dates: start: 20210421, end: 20220131
  2. LOSARTAN [Concomitant]
     Active Substance: LOSARTAN
     Indication: Hypertension
     Dosage: 50 MILLIGRAM
     Route: 048

REACTIONS (2)
  - Large intestinal haemorrhage [Recovering/Resolving]
  - Metastatic uterine cancer [Recovering/Resolving]

NARRATIVE: CASE EVENT DATE: 20220129
